FAERS Safety Report 9995650 (Version 1)
Quarter: 2014Q1

REPORT INFORMATION
  Report Type: Spontaneous
  Country: KR (occurrence: KR)
  Receive Date: 20140311
  Receipt Date: 20140311
  Transmission Date: 20141002
  Serious: Yes (Hospitalization)
  Sender: FDA-Public Use
  Company Number: PHHY2014KR027083

PATIENT
  Age: 55 Year
  Sex: Female
  Weight: 55 kg

DRUGS (9)
  1. OXYCODONE HYDROCHLORIDE [Suspect]
     Indication: PAIN MANAGEMENT
     Dosage: 10 MG, BID
  2. FENTANYL [Suspect]
     Indication: PAIN MANAGEMENT
     Dosage: 100 UG, PER HOUR
  3. GABAPENTIN [Suspect]
     Indication: PAIN MANAGEMENT
     Dosage: 200 MG, TID
  4. CARBAMAZEPINE [Suspect]
     Indication: PAIN MANAGEMENT
     Dosage: 200 MG, BID
  5. DOXORUBICIN [Suspect]
     Indication: CHEMOTHERAPY
  6. CYCLOPHOSPHAMIDE [Suspect]
     Indication: CHEMOTHERAPY
  7. TAXOL [Suspect]
     Indication: CHEMOTHERAPY
  8. GEMZAR [Concomitant]
     Indication: PALLIATIVE CARE
  9. NAVELBINE [Concomitant]
     Indication: PALLIATIVE CARE

REACTIONS (3)
  - Pain [Unknown]
  - Metastases to bone [Unknown]
  - Drug ineffective [Unknown]
